FAERS Safety Report 8583867-5 (Version None)
Quarter: 2012Q3

REPORT INFORMATION
  Report Type: 
  Country: None (occurrence: None)
  Receive Date: 20120810
  Receipt Date: 20120731
  Transmission Date: 20120928
  Serious: Yes (Hospitalization, Disabling, Other)
  Sender: FDA-Public Use
  Company Number: US-009507513-1205USA04492

PATIENT

DRUGS (9)
  1. SUMATRIPTAN SUCCINATE (IMITREX) [Concomitant]
     Indication: MIGRAINE
     Dosage: UNK
     Dates: start: 20020101
  2. ALPRAZOLAM [Concomitant]
     Indication: ANXIETY
     Dosage: UNK
     Dates: start: 20020101
  3. FOSAMAX [Suspect]
     Dosage: 70 MG, UNK
     Route: 048
     Dates: start: 20080307, end: 20090501
  4. FOSAMAX [Suspect]
     Indication: OSTEOPENIA
  5. CORTICOSTEROIDS (UNSPECIFIED) [Concomitant]
     Dosage: UNK
     Dates: start: 20020101, end: 20080101
  6. FOSAMAX [Suspect]
     Indication: OSTEOPOROSIS
     Dosage: 70 MG, QW
     Route: 048
     Dates: start: 20020301, end: 20080306
  7. OS-CAL D [Concomitant]
     Indication: OSTEOPOROSIS
     Dosage: 500 MG, TID
     Dates: start: 19900101
  8. OXYCODONE HCL AND ACETAMINOPHEN [Concomitant]
     Indication: PAIN
     Dosage: UNK
     Dates: start: 20020101, end: 20080701
  9. HYDROCODONE BITARTRATE [Concomitant]
     Indication: PAIN
     Dosage: UNK
     Dates: start: 20020201

REACTIONS (25)
  - DIABETES MELLITUS [None]
  - VIITH NERVE PARALYSIS [None]
  - HIP FRACTURE [None]
  - ANAEMIA MACROCYTIC [None]
  - VITAMIN D DEFICIENCY [None]
  - HORMONE LEVEL ABNORMAL [None]
  - OSTEOPOROSIS [None]
  - MENISCUS LESION [None]
  - HERPES ZOSTER [None]
  - CALCIUM DEFICIENCY [None]
  - FEMUR FRACTURE [None]
  - LOW TURNOVER OSTEOPATHY [None]
  - CONSTIPATION [None]
  - LUMBAR SPINAL STENOSIS [None]
  - DEPRESSION [None]
  - URINARY INCONTINENCE [None]
  - ARTHRALGIA [None]
  - WRIST FRACTURE [None]
  - PATELLOFEMORAL PAIN SYNDROME [None]
  - HYPOKALAEMIA [None]
  - STRESS FRACTURE [None]
  - SPONDYLOLISTHESIS [None]
  - TOBACCO ABUSE [None]
  - LIMB ASYMMETRY [None]
  - ANXIETY [None]
